FAERS Safety Report 5590531-3 (Version None)
Quarter: 2008Q1

REPORT INFORMATION
  Report Type: 
  Country: None (occurrence: None)
  Receive Date: 20080114
  Receipt Date: 20071226
  Transmission Date: 20080703
  Serious: No
  Sender: FDA-Public Use
  Company Number: US-BOEHRINGER INGELHEIM PHARMACEUTICALS, INC.-2008-BP-00048BP

PATIENT
  Sex: Female

DRUGS (4)
  1. SPIRIVA [Suspect]
     Indication: CHRONIC OBSTRUCTIVE PULMONARY DISEASE
     Route: 055
     Dates: start: 20070928, end: 20071015
  2. SPIRIVA [Suspect]
     Indication: BRONCHITIS CHRONIC
  3. SPIRIVA [Suspect]
     Indication: ASTHMA
  4. SPIRIVA [Suspect]
     Indication: DYSPNOEA

REACTIONS (4)
  - BRONCHITIS [None]
  - DYSPNOEA [None]
  - LUNG DISORDER [None]
  - PNEUMONIA [None]
